FAERS Safety Report 18453432 (Version 2)
Quarter: 2020Q4

REPORT INFORMATION
  Report Type: Spontaneous
  Country: CA (occurrence: CA)
  Receive Date: 20201102
  Receipt Date: 20201117
  Transmission Date: 20210114
  Serious: Yes (Other)
  Sender: FDA-Public Use
  Company Number: CA-JNJFOC-20201039119

PATIENT
  Age: 60 Year
  Sex: Male

DRUGS (6)
  1. INFLIXIMAB, RECOMBINANT [Suspect]
     Active Substance: INFLIXIMAB
     Indication: CROHN^S DISEASE
     Route: 042
  2. METHOTREXATE. [Concomitant]
     Active Substance: METHOTREXATE
     Route: 065
  3. CALCIUM W/COLECALCIFEROL [Concomitant]
     Active Substance: CALCIUM\CHOLECALCIFEROL
     Route: 065
  4. PREDNISONE. [Concomitant]
     Active Substance: PREDNISONE
     Route: 048
  5. VITAMIN D                          /00318501/ [Concomitant]
     Active Substance: CHOLECALCIFEROL
     Route: 065
  6. AZATHIOPRINE SODIUM. [Concomitant]
     Active Substance: AZATHIOPRINE SODIUM

REACTIONS (16)
  - Lymphocyte count decreased [Unknown]
  - Neutrophil count increased [Unknown]
  - Oxygen saturation abnormal [Unknown]
  - Vitamin D decreased [Unknown]
  - Blood pressure fluctuation [Unknown]
  - Immune system disorder [Unknown]
  - Pyrexia [Unknown]
  - Intestinal obstruction [Unknown]
  - Red blood cell count decreased [Unknown]
  - C-reactive protein increased [Unknown]
  - Hepatitis B surface antibody negative [Unknown]
  - Off label use [Unknown]
  - Condition aggravated [Unknown]
  - Blood albumin decreased [Unknown]
  - Oropharyngeal pain [Unknown]
  - Alanine aminotransferase increased [Unknown]
